FAERS Safety Report 26131830 (Version 1)
Quarter: 2025Q4

REPORT INFORMATION
  Report Type: Spontaneous
  Country: RU (occurrence: RU)
  Receive Date: 20251208
  Receipt Date: 20251208
  Transmission Date: 20260118
  Serious: Yes (Hospitalization, Other)
  Sender: NOVARTIS
  Company Number: RU-002147023-NVSC2025RU184359

PATIENT

DRUGS (2)
  1. MYCOPHENOLIC ACID [Suspect]
     Active Substance: MYCOPHENOLIC ACID
     Indication: Prophylaxis against transplant rejection
     Dosage: 1440 MG, QD
     Route: 065
  2. TACROLIMUS [Concomitant]
     Active Substance: TACROLIMUS
     Indication: Prophylaxis against transplant rejection
     Dosage: 6 MG, QD
     Route: 065

REACTIONS (7)
  - Tonsillar hypertrophy [Recovered/Resolved]
  - Sensation of foreign body [Unknown]
  - Dysphagia [Unknown]
  - Dyspnoea [Unknown]
  - Leukopenia [Unknown]
  - Tonsillar hypertrophy [Unknown]
  - Product use in unapproved indication [Unknown]
